FAERS Safety Report 7871003-X (Version None)
Quarter: 2011Q4

REPORT INFORMATION
  Report Type: 
  Country: None (occurrence: None)
  Receive Date: 20111029
  Receipt Date: 20110222
  Transmission Date: 20120403
  Serious: Yes (Other)
  Sender: FDA-Public Use
  Company Number: US-AMGEN-USASP2011010376

PATIENT
  Age: 70 Year
  Sex: Female

DRUGS (3)
  1. IRON [Concomitant]
  2. ENBREL [Suspect]
     Indication: RHEUMATOID ARTHRITIS
     Dosage: 50 MG, QWK
     Dates: start: 20090801, end: 20101101
  3. WARFARIN SODIUM [Concomitant]
     Indication: THROMBOSIS

REACTIONS (11)
  - NODULE [None]
  - PAIN IN EXTREMITY [None]
  - ERYTHEMA [None]
  - PAIN [None]
  - MUSCLE ATROPHY [None]
  - ANAEMIA [None]
  - INCREASED TENDENCY TO BRUISE [None]
  - OEDEMA PERIPHERAL [None]
  - FEELING HOT [None]
  - DYSSTASIA [None]
  - BLOOD CREATININE INCREASED [None]
